FAERS Safety Report 15114033 (Version 1)
Quarter: 2018Q3

REPORT INFORMATION
  Report Type: Report from Study
  Country: IT (occurrence: IT)
  Receive Date: 20180706
  Receipt Date: 20180706
  Transmission Date: 20181010
  Serious: Yes (Other)
  Sender: FDA-Public Use
  Company Number: IT-TEVA-2018-IT-921226

PATIENT
  Age: 2 Year
  Sex: Male
  Weight: 12 kg

DRUGS (2)
  1. AMOXICILLIN TRIHYDRATE [Suspect]
     Active Substance: AMOXICILLIN
     Indication: TONSILLITIS
     Dosage: 16.5 ML DAILY;
     Route: 048
     Dates: start: 20180512, end: 20180514
  2. TACHIPIRINA 120 MG/5 ML SCIROPPO SENZA ZUCCHERO [Concomitant]
     Dosage: 120 MG/5 ML SUGAR?FREE SYRUP
     Route: 065

REACTIONS (3)
  - Pruritus [Recovering/Resolving]
  - Drug hypersensitivity [Recovering/Resolving]
  - Rash [Recovering/Resolving]

NARRATIVE: CASE EVENT DATE: 20180514
